FAERS Safety Report 7500342-7 (Version None)
Quarter: 2011Q2

REPORT INFORMATION
  Report Type: 
  Country: None (occurrence: None)
  Receive Date: 20110524
  Receipt Date: 20110511
  Transmission Date: 20111010
  Serious: Yes (Life-Threatening, Hospitalization, Other)
  Sender: FDA-Public Use
  Company Number: US-BAYER-200939437NA

PATIENT
  Age: 36 Year
  Sex: Female
  Weight: 73 kg

DRUGS (19)
  1. YAZ [Suspect]
     Indication: CONTRACEPTION
     Dosage: 1 DF, QD
     Dates: start: 20070801, end: 20080810
  2. BIOTIN [Concomitant]
     Route: 048
  3. MOTRIN [Concomitant]
     Route: 048
  4. ASPIRIN [Concomitant]
     Dosage: 81 MG/D, UNK
  5. LIPITOR [Concomitant]
  6. SYNTHROID [Concomitant]
     Route: 048
  7. YAZ [Suspect]
     Indication: PREMENSTRUAL SYNDROME
     Dosage: UNK
     Dates: start: 20070801, end: 20080810
  8. SPIRONOLACTONE [Concomitant]
  9. YASMIN [Suspect]
     Indication: ACNE
     Route: 048
     Dates: start: 20060801, end: 20080701
  10. YASMIN [Suspect]
     Indication: CONTRACEPTION
  11. METFORMIN HCL [Concomitant]
  12. YAZ [Suspect]
     Indication: ACNE
     Dates: start: 20060801, end: 20080701
  13. YASMIN [Suspect]
     Indication: PREMENSTRUAL SYNDROME
     Dosage: 1 DF, QD
     Dates: start: 20070801, end: 20080813
  14. DIETARY SUPPLEMENT [Concomitant]
  15. TRIGONELLA FOENUM-GRAECUM [Concomitant]
  16. PLAVIX [Concomitant]
     Dosage: 75 MG/D, UNK
  17. ZINC [Concomitant]
     Route: 048
  18. LEVOXYL [Concomitant]
  19. JANUVIA [Concomitant]
     Route: 048

REACTIONS (13)
  - HEMIPARESIS [None]
  - HEMICEPHALALGIA [None]
  - PAIN [None]
  - STRABISMUS [None]
  - DIZZINESS [None]
  - EYE PAIN [None]
  - VISUAL IMPAIRMENT [None]
  - CEREBROVASCULAR ACCIDENT [None]
  - HYPOAESTHESIA FACIAL [None]
  - EXTENSOR PLANTAR RESPONSE [None]
  - FATIGUE [None]
  - ASTHENIA [None]
  - DIPLOPIA [None]
